FAERS Safety Report 21936342 (Version 1)
Quarter: 2023Q1

REPORT INFORMATION
  Report Type: Spontaneous
  Country: US (occurrence: None)
  Receive Date: 20230131
  Receipt Date: 20230131
  Transmission Date: 20230418
  Serious: Yes (Death)
  Sender: FDA-Public Use
  Company Number: None

PATIENT
  Age: 75 Year
  Sex: Female
  Weight: 83.46 kg

DRUGS (14)
  1. TEMOZOLOMIDE [Suspect]
     Active Substance: TEMOZOLOMIDE
     Dosage: FREQUENCY : DAILY;?
     Route: 048
  2. ALLOPURINOL [Concomitant]
  3. AMLODIPINE [Concomitant]
  4. ATORVASTATIN [Concomitant]
  5. ATOVAQUONE [Concomitant]
  6. BUSPIRONE [Concomitant]
  7. CENTRUM SILVER [Concomitant]
  8. FLUOXETINE [Concomitant]
  9. FUROSEMIDE [Concomitant]
  10. VITAMIN B12 [Concomitant]
  11. LEVETIRACETAM [Concomitant]
  12. LEVOTHYROXINE [Concomitant]
  13. ONDANSETRON [Concomitant]
  14. POTASSIUM ACETATE [Concomitant]

REACTIONS (1)
  - Death [None]

NARRATIVE: CASE EVENT DATE: 20230127
